FAERS Safety Report 7155179-8 (Version None)
Quarter: 2010Q4

REPORT INFORMATION
  Report Type: 
  Country: None (occurrence: None)
  Receive Date: 20101214
  Receipt Date: 20101019
  Transmission Date: 20110411
  Serious: No
  Sender: FDA-Public Use
  Company Number: US-AMGEN-KDL317853

PATIENT

DRUGS (2)
  1. ENBREL [Suspect]
     Indication: PSORIATIC ARTHROPATHY
     Dosage: 25 MG, 2 TIMES/WK
     Route: 058
     Dates: start: 20081016
  2. ENBREL [Suspect]
     Dosage: 50 MG, UNK

REACTIONS (5)
  - ARTHRITIS [None]
  - INJECTION SITE PAIN [None]
  - PALPITATIONS [None]
  - STRESS [None]
  - VENTRICULAR EXTRASYSTOLES [None]
